FAERS Safety Report 18507386 (Version 2)
Quarter: 2020Q4

REPORT INFORMATION
  Report Type: Report from Study
  Country: CL (occurrence: CL)
  Receive Date: 20201116
  Receipt Date: 20201125
  Transmission Date: 20210114
  Serious: Yes (Death, Hospitalization)
  Sender: FDA-Public Use
  Company Number: CL-EISAI MEDICAL RESEARCH-EC-2020-083759

PATIENT
  Age: 61 Year
  Sex: Male
  Weight: 79.5 kg

DRUGS (14)
  1. PEMETREXED. [Suspect]
     Active Substance: PEMETREXED
     Route: 041
     Dates: start: 20200221, end: 20200221
  2. BISOPROLOL [Concomitant]
     Active Substance: BISOPROLOL
     Dates: start: 201912
  3. CARBOPLATIN. [Suspect]
     Active Substance: CARBOPLATIN
     Indication: NON-SMALL CELL LUNG CANCER METASTATIC
     Dosage: AREA UNDER THE CURVE (AUC) 5 MG/ML/MIN
     Route: 041
     Dates: start: 20200110, end: 20200131
  4. CARBAMAZEPINE. [Concomitant]
     Active Substance: CARBAMAZEPINE
     Dates: start: 201905
  5. PREGABALIN. [Concomitant]
     Active Substance: PREGABALIN
     Dates: start: 201802
  6. PEMETREXED. [Suspect]
     Active Substance: PEMETREXED
     Indication: NON-SMALL CELL LUNG CANCER METASTATIC
     Route: 041
     Dates: start: 20200110, end: 20200131
  7. METOCLOPRAMIDE. [Concomitant]
     Active Substance: METOCLOPRAMIDE
     Dates: start: 20200201, end: 20200203
  8. PEMBROLIZUMAB. [Suspect]
     Active Substance: PEMBROLIZUMAB
     Indication: NON-SMALL CELL LUNG CANCER METASTATIC
     Route: 041
     Dates: start: 20200110, end: 20200131
  9. CARBOPLATIN. [Suspect]
     Active Substance: CARBOPLATIN
     Dosage: AREA UNDER THE CURVE (AUC) 5 MG/ML/MIN
     Route: 041
     Dates: start: 20200221, end: 20200221
  10. ACETAMINOPHEN. [Concomitant]
     Active Substance: ACETAMINOPHEN
     Dates: start: 20191031
  11. ONDANSETRON [Concomitant]
     Active Substance: ONDANSETRON
     Dates: start: 20200201, end: 20200203
  12. LENVATINIB [Suspect]
     Active Substance: LENVATINIB
     Indication: NON-SMALL CELL LUNG CANCER METASTATIC
     Route: 048
     Dates: start: 20200120
  13. PEMBROLIZUMAB. [Suspect]
     Active Substance: PEMBROLIZUMAB
     Route: 041
     Dates: start: 20200221, end: 20200221
  14. ELECTROLYTES (UNSPECIFIED) [Concomitant]
     Active Substance: ELECTROLYTES NOS
     Dates: start: 20200213, end: 20200213

REACTIONS (1)
  - Pleural effusion [Recovered/Resolved]

NARRATIVE: CASE EVENT DATE: 20200216
